FAERS Safety Report 6679201-8 (Version None)
Quarter: 2010Q2

REPORT INFORMATION
  Report Type: 
  Country: None (occurrence: None)
  Receive Date: 20100413
  Receipt Date: 20100324
  Transmission Date: 20101027
  Serious: No
  Sender: FDA-Public Use
  Company Number: DE-SANOFI-AVENTIS-2010SA003656

PATIENT
  Age: 69 Year
  Sex: Female

DRUGS (1)
  1. TRENTAL [Suspect]
     Indication: SUDDEN HEARING LOSS
     Route: 048
     Dates: start: 20091101, end: 20100101

REACTIONS (2)
  - FEELING HOT [None]
  - OEDEMA PERIPHERAL [None]
